FAERS Safety Report 9603313 (Version 2)
Quarter: 2013Q4

REPORT INFORMATION
  Report Type: Spontaneous
  Country: US (occurrence: US)
  Receive Date: 20131007
  Receipt Date: 20131007
  Transmission Date: 20140711
  Serious: Yes (Death)
  Sender: FDA-Public Use
  Company Number: US-ABBVIE-08P-163-0486772-00

PATIENT
  Age: 51 Year
  Sex: Female

DRUGS (21)
  1. ADALIMUMAB [Suspect]
     Indication: POLYARTHRITIS
     Dates: start: 2004, end: 2004
  2. ADALIMUMAB [Suspect]
     Dates: start: 200710
  3. PREDNISONE [Concomitant]
     Indication: POLYARTHRITIS
     Dates: start: 2006
  4. PREDNISONE [Concomitant]
     Dates: start: 2006, end: 2006
  5. PREDNISONE [Concomitant]
     Dates: start: 2005, end: 2006
  6. PREDNISONE [Concomitant]
     Dates: start: 2004, end: 2005
  7. PREDNISONE [Concomitant]
     Dates: start: 2004, end: 2004
  8. PREDNISONE [Concomitant]
     Dates: start: 2003, end: 2004
  9. PREDNISONE [Concomitant]
     Dates: start: 2002, end: 2003
  10. PREDNISONE [Concomitant]
     Dates: start: 2001, end: 2002
  11. PREDNISONE [Concomitant]
     Dates: start: 2000, end: 2001
  12. METHOTREXATE [Concomitant]
     Indication: POLYARTHRITIS
     Dates: start: 2007
  13. METHOTREXATE [Concomitant]
     Dates: start: 2006, end: 2006
  14. METHOTREXATE [Concomitant]
     Dates: start: 2006, end: 2006
  15. METHOTREXATE [Concomitant]
     Dates: start: 2005, end: 2006
  16. METHOTREXATE [Concomitant]
     Dates: start: 2005, end: 2005
  17. METHOTREXATE [Concomitant]
     Dates: start: 2002, end: 2002
  18. METHOTREXATE [Concomitant]
     Dates: start: 2002, end: 2002
  19. METHOTREXATE [Concomitant]
     Dates: start: 2002, end: 2002
  20. ALBUTEROL [Concomitant]
     Indication: PRODUCT USED FOR UNKNOWN INDICATION
  21. IPRATROPIUM [Concomitant]
     Dosage: NEBULIZER AS REQUIRED

REACTIONS (3)
  - Eosinophilic myocarditis [Fatal]
  - Nausea [Recovered/Resolved]
  - Vomiting [Recovered/Resolved]
